FAERS Safety Report 21870676 (Version 1)
Quarter: 2023Q1

REPORT INFORMATION
  Report Type: Report from Study
  Country: US (occurrence: US)
  Receive Date: 20230117
  Receipt Date: 20230117
  Transmission Date: 20230418
  Serious: No
  Sender: FDA-Public Use
  Company Number: US-ABBVIE-4230267

PATIENT
  Sex: Female

DRUGS (1)
  1. RINVOQ [Suspect]
     Active Substance: UPADACITINIB
     Indication: Product used for unknown indication
     Route: 048

REACTIONS (5)
  - Intervertebral disc protrusion [Unknown]
  - Neuropathy peripheral [Unknown]
  - Psoriasis [Unknown]
  - Gait disturbance [Unknown]
  - Pain [Recovering/Resolving]
